FAERS Safety Report 13615141 (Version 4)
Quarter: 2017Q3

REPORT INFORMATION
  Report Type: Spontaneous
  Country: US (occurrence: US)
  Receive Date: 20170606
  Receipt Date: 20170823
  Transmission Date: 20171127
  Serious: Yes (Death)
  Sender: FDA-Public Use
  Company Number: PHEH2017US016130

PATIENT
  Age: 79 Year
  Sex: Male

DRUGS (3)
  1. RYDAPT [Suspect]
     Active Substance: MIDOSTAURIN
     Indication: MYELODYSPLASTIC SYNDROME TRANSFORMATION
  2. RYDAPT [Suspect]
     Active Substance: MIDOSTAURIN
     Indication: MYELODYSPLASTIC SYNDROME
     Dosage: 50 MG, BID
     Route: 048
     Dates: start: 20170524
  3. RYDAPT [Suspect]
     Active Substance: MIDOSTAURIN
     Indication: ACUTE MYELOID LEUKAEMIA

REACTIONS (3)
  - Acute myeloid leukaemia [Fatal]
  - Product use in unapproved indication [Unknown]
  - Vomiting [Unknown]

NARRATIVE: CASE EVENT DATE: 20170524
